FAERS Safety Report 4842421-9 (Version None)
Quarter: 2005Q4

REPORT INFORMATION
  Report Type: 
  Country: None (occurrence: None)
  Receive Date: 20051125
  Receipt Date: 20051111
  Transmission Date: 20060501
  Serious: Yes (Other)
  Sender: FDA-Public Use
  Company Number: CA200511000863

PATIENT
  Age: 65 Year
  Sex: Female

DRUGS (1)
  1. EVISTA [Suspect]
     Dates: start: 19990101

REACTIONS (2)
  - ENDOMETRIAL CANCER STAGE I [None]
  - UTERINE POLYP [None]
